FAERS Safety Report 20154336 (Version 3)
Quarter: 2022Q1

REPORT INFORMATION
  Report Type: Spontaneous
  Country: CA (occurrence: CA)
  Receive Date: 20211207
  Receipt Date: 20220120
  Transmission Date: 20220424
  Serious: Yes (Hospitalization, Other)
  Sender: FDA-Public Use
  Company Number: CA-CELLTRION INC.-2021CA014751

PATIENT

DRUGS (6)
  1. INFLECTRA [Suspect]
     Active Substance: INFLIXIMAB-DYYB
     Indication: Crohn^s disease
     Dosage: 500 MG, 0, 2, 6, THEN EVERY 8 WEEKS ((HOSPITAL START, RECEIVED 2 INFUSIONS)
     Route: 042
     Dates: start: 20211008
  2. INFLECTRA [Suspect]
     Active Substance: INFLIXIMAB-DYYB
     Dosage: 500 MG (INDUCTION WEEK 2) AND 6
     Route: 042
     Dates: start: 20211022
  3. INFLECTRA [Suspect]
     Active Substance: INFLIXIMAB-DYYB
     Dosage: 10 MG/KG ONE TIME RESCUE DOSE
     Route: 042
     Dates: start: 20211127, end: 20211127
  4. CALCIUM [Concomitant]
     Active Substance: CALCIUM
     Dosage: 1 DF
  5. PANTOPRAZOLE [Concomitant]
     Active Substance: PANTOPRAZOLE
     Dosage: 1 DF
  6. VITAMIN D COMPLEX [Concomitant]
     Dosage: 1 DF

REACTIONS (10)
  - Abscess intestinal [Not Recovered/Not Resolved]
  - Feeling hot [Unknown]
  - Dyspnoea [Recovered/Resolved]
  - Erythema [Recovered/Resolved]
  - Lip oedema [Recovered/Resolved]
  - Ocular hyperaemia [Unknown]
  - Chills [Recovered/Resolved]
  - Abdominal pain upper [Recovered/Resolved]
  - Feeling cold [Recovered/Resolved]
  - Tongue oedema [Recovered/Resolved]

NARRATIVE: CASE EVENT DATE: 20211001
